FAERS Safety Report 8582852-7 (Version None)
Quarter: 2012Q3

REPORT INFORMATION
  Report Type: 
  Country: None (occurrence: None)
  Receive Date: 20120809
  Receipt Date: 20120731
  Transmission Date: 20120928
  Serious: Yes (Hospitalization, Other)
  Sender: FDA-Public Use
  Company Number: PR-ABBOTT-12P-131-0929582-00

PATIENT
  Sex: Female
  Weight: 88.984 kg

DRUGS (13)
  1. HUMIRA [Suspect]
     Route: 058
     Dates: start: 20120101, end: 20120201
  2. HUMIRA [Suspect]
     Route: 058
     Dates: start: 20120201, end: 20120401
  3. NORVASC [Concomitant]
     Indication: HYPERTENSION
     Route: 048
  4. HUMIRA [Suspect]
     Route: 058
     Dates: start: 20111001, end: 20111101
  5. HUMIRA [Suspect]
     Route: 058
     Dates: start: 20120509
  6. HUMIRA [Suspect]
     Indication: RHEUMATOID ARTHRITIS
     Route: 058
     Dates: start: 20110901, end: 20111001
  7. FOLIC ACID [Concomitant]
     Indication: PRODUCT USED FOR UNKNOWN INDICATION
     Route: 048
  8. METHOTREXATE [Concomitant]
     Indication: PRODUCT USED FOR UNKNOWN INDICATION
     Route: 058
  9. VITAMIN D [Concomitant]
     Indication: PRODUCT USED FOR UNKNOWN INDICATION
     Dosage: 1 IN 1 DAY, SOFT GEL
     Route: 048
  10. CYMBALTA [Concomitant]
     Indication: PRODUCT USED FOR UNKNOWN INDICATION
     Route: 048
  11. JANUVIA [Concomitant]
     Indication: DIABETES MELLITUS
     Route: 048
  12. SYNTHROID [Concomitant]
     Indication: THYROID NEOPLASM
     Route: 048
  13. AVAPRO [Concomitant]
     Indication: HYPERTENSION
     Route: 048

REACTIONS (4)
  - OVARIAN CYST [None]
  - URINARY TRACT INFECTION [None]
  - NASOPHARYNGITIS [None]
  - HAEMORRHAGIC CYST [None]
